FAERS Safety Report 9644511 (Version 1)
Quarter: 2013Q4

REPORT INFORMATION
  Report Type: Spontaneous
  Country: NO (occurrence: NO)
  Receive Date: 20131025
  Receipt Date: 20131025
  Transmission Date: 20140711
  Serious: Yes (Other)
  Sender: FDA-Public Use
  Company Number: NO-ACCORD-019958

PATIENT
  Age: 60 Year
  Sex: Female

DRUGS (3)
  1. CICLOSPORIN [Suspect]
     Indication: LUNG TRANSPLANT
  2. PREDNISOLONE [Suspect]
     Indication: LUNG TRANSPLANT
  3. MYCOPHENOLATE MOFETIL [Suspect]
     Indication: LUNG TRANSPLANT

REACTIONS (7)
  - Kaposi^s sarcoma [Recovered/Resolved]
  - Herpes virus infection [Recovered/Resolved]
  - Anaemia [Recovered/Resolved]
  - Obliterative bronchiolitis [Recovered/Resolved]
  - Pulmonary function test decreased [Recovered/Resolved]
  - Renal failure [Recovered/Resolved]
  - Off label use [Unknown]
